FAERS Safety Report 6236722-X (Version None)
Quarter: 2009Q2

REPORT INFORMATION
  Report Type: 
  Country: None (occurrence: None)
  Receive Date: 20090619
  Receipt Date: 20090608
  Transmission Date: 20091009
  Serious: Yes (Hospitalization)
  Sender: FDA-Public Use
  Company Number: PHHY2009HU22672

PATIENT
  Age: 3 Year
  Sex: Male

DRUGS (1)
  1. LEPONEX [Suspect]
     Dosage: 50 MG, UNK
     Route: 048

REACTIONS (3)
  - ACCIDENTAL EXPOSURE [None]
  - GRAND MAL CONVULSION [None]
  - NEUROLOGICAL SYMPTOM [None]
